FAERS Safety Report 9894302 (Version 2)
Quarter: 2014Q1

REPORT INFORMATION
  Report Type: Spontaneous
  Country: BR (occurrence: BR)
  Receive Date: 20140213
  Receipt Date: 20140228
  Transmission Date: 20141002
  Serious: Yes (Disabling)
  Sender: FDA-Public Use
  Company Number: BR-GLAXOSMITHKLINE-B0968688A

PATIENT
  Sex: Female
  Weight: 55 kg

DRUGS (5)
  1. RYTMONORM [Suspect]
     Indication: CARDIAC DISORDER
     Dosage: 600MG PER DAY
     Route: 048
     Dates: start: 201308, end: 20140203
  2. LEXOTAN [Concomitant]
     Indication: SLEEP DISORDER
     Dosage: 3MG PER DAY
     Route: 048
  3. LOSARTAN [Concomitant]
     Indication: BLOOD PRESSURE
     Dosage: 50MG IN THE MORNING
     Route: 048
  4. SERTRALINE [Concomitant]
     Indication: DEPRESSION
     Dosage: 25MG AT NIGHT
     Route: 048
     Dates: start: 201312
  5. ACETYLSALICYLIC ACID [Concomitant]
     Indication: ANTIPLATELET THERAPY
     Dosage: 1TAB PER DAY
     Route: 048
     Dates: start: 201308

REACTIONS (2)
  - Movement disorder [Unknown]
  - Gait disturbance [Unknown]
